FAERS Safety Report 15633782 (Version 1)
Quarter: 2018Q4

REPORT INFORMATION
  Report Type: Spontaneous
  Country: US (occurrence: US)
  Receive Date: 20181119
  Receipt Date: 20181119
  Transmission Date: 20190205
  Serious: Yes (Other)
  Sender: FDA-Public Use
  Company Number: US-SA-2018SA314734

PATIENT
  Age: 78 Year
  Sex: Male

DRUGS (1)
  1. NASACORT ALLERGY 24HR [Suspect]
     Active Substance: TRIAMCINOLONE ACETONIDE
     Indication: RESPIRATORY DISORDER
     Dosage: 1 SPRAY EACH NOSTRIL
     Route: 045

REACTIONS (3)
  - Dyspnoea [Unknown]
  - Intraocular pressure increased [Unknown]
  - Therapeutic response decreased [Unknown]
